FAERS Safety Report 4481069-5 (Version None)
Quarter: 2004Q4

REPORT INFORMATION
  Report Type: 
  Country: None (occurrence: None)
  Receive Date: 20041019
  Receipt Date: 20041007
  Transmission Date: 20050328
  Serious: No
  Sender: FDA-Public Use
  Company Number: 04H-163-0276914-00

PATIENT
  Age: 46 Year
  Sex: Female

DRUGS (2)
  1. PHENOBARBITAL SODIUM INJECTION (PHENOBARBITAL SODIUM) [Suspect]
     Indication: EPILEPSY
  2. WARFARIN SODIUM [Concomitant]

REACTIONS (4)
  - DISEASE RECURRENCE [None]
  - DRUG INTERACTION [None]
  - EPILEPSY [None]
  - MESENTERIC VEIN THROMBOSIS [None]
